FAERS Safety Report 13851546 (Version 2)
Quarter: 2017Q3

REPORT INFORMATION
  Report Type: Spontaneous
  Country: US (occurrence: US)
  Receive Date: 20170809
  Receipt Date: 20170924
  Transmission Date: 20171127
  Serious: Yes (Hospitalization, Other)
  Sender: FDA-Public Use
  Company Number: US-BEH-2017082656

PATIENT
  Sex: Female
  Weight: 56.69 kg

DRUGS (36)
  1. HIZENTRA [Suspect]
     Active Substance: HUMAN IMMUNOGLOBULIN G
     Indication: IMMUNODEFICIENCY COMMON VARIABLE
     Dosage: 17 G, QW
     Route: 058
     Dates: start: 20120228
  2. CYMBALTA [Concomitant]
     Active Substance: DULOXETINE HYDROCHLORIDE
  3. TOBRAMYCIN. [Concomitant]
     Active Substance: TOBRAMYCIN
  4. FERROUS SULFATE. [Concomitant]
     Active Substance: FERROUS SULFATE
  5. HIZENTRA [Suspect]
     Active Substance: HUMAN IMMUNOGLOBULIN G
     Dosage: UNK
     Route: 058
  6. MEDROL [Concomitant]
     Active Substance: METHYLPREDNISOLONE
  7. ERYTHROMYCIN                       /00020905/ [Concomitant]
  8. OXYCODONE [Concomitant]
     Active Substance: OXYCODONE
  9. B COMPLEX                          /00212701/ [Concomitant]
     Active Substance: NIACINAMIDE\PYRIDOXINE\RIBOFLAVIN\THIAMINE
  10. GABAPENTIN. [Concomitant]
     Active Substance: GABAPENTIN
  11. DUONEB [Concomitant]
     Active Substance: ALBUTEROL SULFATE\IPRATROPIUM BROMIDE
  12. LMX                                /00033401/ [Concomitant]
  13. CALCIUM D                          /01272001/ [Concomitant]
  14. VESICARE [Concomitant]
     Active Substance: SOLIFENACIN SUCCINATE
  15. METHOTREXATE. [Concomitant]
     Active Substance: METHOTREXATE
  16. NEXIUM [Concomitant]
     Active Substance: ESOMEPRAZOLE MAGNESIUM
  17. HIZENTRA [Suspect]
     Active Substance: HUMAN IMMUNOGLOBULIN G
     Dosage: UNK
     Route: 058
  18. HIZENTRA [Suspect]
     Active Substance: HUMAN IMMUNOGLOBULIN G
     Dosage: UNK
     Route: 058
  19. EPIPEN [Concomitant]
     Active Substance: EPINEPHRINE
  20. ROBITUSSIN (GUAIFENESIN) [Concomitant]
     Active Substance: GUAIFENESIN
  21. DIPHENHYDRAMINE. [Concomitant]
     Active Substance: DIPHENHYDRAMINE
  22. ALENDRONATE [Concomitant]
     Active Substance: ALENDRONATE SODIUM
  23. PROMETHAZINE [Concomitant]
     Active Substance: PROMETHAZINE\PROMETHAZINE HYDROCHLORIDE
  24. ABILIFY [Concomitant]
     Active Substance: ARIPIPRAZOLE
  25. DOXYCYCLINE. [Concomitant]
     Active Substance: DOXYCYCLINE
  26. LEXAPRO [Concomitant]
     Active Substance: ESCITALOPRAM OXALATE
  27. HIZENTRA [Suspect]
     Active Substance: HUMAN IMMUNOGLOBULIN G
     Dosage: UNK
     Route: 058
  28. CLINDAMYCIN. [Concomitant]
     Active Substance: CLINDAMYCIN
  29. SENNA LAXATIVE [Concomitant]
     Active Substance: SENNOSIDES
  30. AZITHROMYCIN ANHYDROUS. [Concomitant]
     Active Substance: AZITHROMYCIN ANHYDROUS
  31. SPIRONOLACTON [Concomitant]
     Active Substance: SPIRONOLACTONE
  32. HYDROCODONE W/APAP                 /00607101/ [Concomitant]
  33. ENBREL [Concomitant]
     Active Substance: ETANERCEPT
  34. FOLIC ACID. [Concomitant]
     Active Substance: FOLIC ACID
  35. CETIRIZINE [Concomitant]
     Active Substance: CETIRIZINE HYDROCHLORIDE
  36. ESTRADIOL. [Concomitant]
     Active Substance: ESTRADIOL

REACTIONS (2)
  - Pneumonia [Recovering/Resolving]
  - Platelet count decreased [Unknown]
